FAERS Safety Report 5001123-9 (Version None)
Quarter: 2006Q2

REPORT INFORMATION
  Report Type: 
  Country: None (occurrence: None)
  Receive Date: 20060512
  Receipt Date: 20060508
  Transmission Date: 20061013
  Serious: Yes (Life-Threatening, Hospitalization)
  Sender: FDA-Public Use
  Company Number: 2006GB00796

PATIENT
  Age: 51 Year
  Sex: Male

DRUGS (7)
  1. OMEPRAZOLE [Suspect]
     Route: 065
     Dates: start: 20060418, end: 20060420
  2. TAZOCIN [Suspect]
     Indication: SUBACUTE ENDOCARDITIS
     Route: 042
     Dates: start: 20060417, end: 20060420
  3. FLUCONAZOLE [Suspect]
     Indication: SUBACUTE ENDOCARDITIS
     Route: 042
     Dates: start: 20060418, end: 20060420
  4. TERLIPRESSIN [Concomitant]
     Indication: OESOPHAGEAL VARICES HAEMORRHAGE
     Dosage: 1 - 2 MG QDS
     Route: 042
     Dates: start: 20060417
  5. LACTULOSE [Concomitant]
     Indication: HEPATIC ENCEPHALOPATHY
     Route: 048
     Dates: start: 20060410
  6. PABRINEX [Concomitant]
     Route: 042
     Dates: start: 20060417
  7. VITAMIN K [Concomitant]
     Indication: COAGULATION TIME SHORTENED
     Route: 065
     Dates: start: 20060417

REACTIONS (3)
  - SKIN FRAGILITY [None]
  - SKIN LACERATION [None]
  - STEVENS-JOHNSON SYNDROME [None]
